FAERS Safety Report 21438938 (Version 1)
Quarter: 2022Q4

REPORT INFORMATION
  Report Type: Report from Study
  Country: US (occurrence: US)
  Receive Date: 20221011
  Receipt Date: 20221011
  Transmission Date: 20230113
  Serious: Yes (Hospitalization)
  Sender: FDA-Public Use
  Company Number: US-ABBVIE-4148973

PATIENT
  Sex: Female

DRUGS (1)
  1. HUMIRA [Suspect]
     Active Substance: ADALIMUMAB
     Indication: Colitis ulcerative
     Dosage: CITRATE FREE
     Route: 058

REACTIONS (7)
  - Hospitalisation [Unknown]
  - Chest pain [Unknown]
  - Tremor [Unknown]
  - Blood glucose decreased [Unknown]
  - Fall [Unknown]
  - Gait disturbance [Unknown]
  - Joint injury [Unknown]

NARRATIVE: CASE EVENT DATE: 20220101
